FAERS Safety Report 7929113-4 (Version None)
Quarter: 2011Q4

REPORT INFORMATION
  Report Type: 
  Country: None (occurrence: None)
  Receive Date: 20111119
  Receipt Date: 20111109
  Transmission Date: 20120403
  Serious: Yes (Other)
  Sender: FDA-Public Use
  Company Number: US-ASTRAZENECA-2010SE48997

PATIENT
  Age: 82 Year
  Sex: Male

DRUGS (4)
  1. PLAVIX [Concomitant]
  2. INSULIN [Concomitant]
     Indication: DIABETES MELLITUS
  3. CRESTOR [Suspect]
     Indication: HYPERCHOLESTEROLAEMIA
     Route: 048
  4. ZOCOR [Suspect]
     Indication: HYPERCHOLESTEROLAEMIA
     Route: 065

REACTIONS (6)
  - RENAL FAILURE [None]
  - PANCREATITIS ACUTE [None]
  - HYPOCHONDRIASIS [None]
  - HEPATIC FAILURE [None]
  - LOW DENSITY LIPOPROTEIN INCREASED [None]
  - BLOOD GLUCOSE DECREASED [None]
